FAERS Safety Report 7311678-7 (Version None)
Quarter: 2011Q1

REPORT INFORMATION
  Report Type: 
  Country: None (occurrence: None)
  Receive Date: 20110224
  Receipt Date: 20110214
  Transmission Date: 20110831
  Serious: Yes (Hospitalization)
  Sender: FDA-Public Use
  Company Number: US-ALEXION-A201100192

PATIENT
  Sex: Female

DRUGS (5)
  1. SOLIRIS [Suspect]
     Indication: PAROXYSMAL NOCTURNAL HAEMOGLOBINURIA
     Dosage: UNK
     Route: 042
     Dates: start: 20080901
  2. COUMADIN [Concomitant]
     Dosage: UNK
     Route: 048
  3. IRON [Concomitant]
     Dosage: UNK
     Route: 048
  4. NORCO [Concomitant]
     Dosage: UNK
     Route: 048
  5. PROZAC                             /00724401/ [Concomitant]
     Dosage: UNK
     Route: 048

REACTIONS (2)
  - PYREXIA [None]
  - TACHYCARDIA [None]
